FAERS Safety Report 6013685-3 (Version None)
Quarter: 2008Q4

REPORT INFORMATION
  Report Type: 
  Country: None (occurrence: None)
  Receive Date: 20081219
  Receipt Date: 20081212
  Transmission Date: 20090506
  Serious: Yes (Hospitalization)
  Sender: FDA-Public Use
  Company Number: A0724621A

PATIENT
  Sex: Female
  Weight: 79.5 kg

DRUGS (8)
  1. AVANDIA [Suspect]
     Dosage: 8MG PER DAY
     Route: 048
     Dates: start: 20050501, end: 20070101
  2. AVANDAMET [Suspect]
     Route: 048
     Dates: start: 20051001
  3. METFORMIN HCL [Concomitant]
     Dates: start: 20040116
  4. DIABETA [Concomitant]
     Dates: start: 20040622, end: 20040101
  5. METOPROLOL [Concomitant]
  6. VYTORIN [Concomitant]
  7. LEXAPRO [Concomitant]
  8. PREVACID [Concomitant]

REACTIONS (3)
  - ADVERSE EVENT [None]
  - CHEST PAIN [None]
  - TACHYCARDIA [None]
